FAERS Safety Report 6482606-1 (Version None)
Quarter: 2009Q4

REPORT INFORMATION
  Report Type: 
  Country: None (occurrence: None)
  Receive Date: 20091209
  Receipt Date: 20091201
  Transmission Date: 20100525
  Serious: Yes (Other)
  Sender: FDA-Public Use
  Company Number: GB-RANBAXY-2007RR-06652

PATIENT
  Age: 46 Year
  Sex: Male

DRUGS (4)
  1. FLUOXETINE [Suspect]
     Indication: OBSESSIVE-COMPULSIVE DISORDER
     Dosage: 20 MG, QD
     Route: 048
     Dates: start: 19990101, end: 19990101
  2. HALOPERIDOL [Concomitant]
     Indication: HUNTINGTON'S CHOREA
     Dosage: 5 MG, BID
     Route: 048
     Dates: end: 20000701
  3. CLOMIPRAMINE [Concomitant]
     Indication: CHOREA
     Dosage: 200 MG, QD
     Route: 048
  4. RISPERIDONE [Concomitant]
     Indication: CHOREA
     Dosage: 1 MG, QID

REACTIONS (6)
  - DECREASED APPETITE [None]
  - DEPRESSED MOOD [None]
  - DEPRESSION [None]
  - HUNTINGTON'S CHOREA [None]
  - SLEEP DISORDER [None]
  - TEARFULNESS [None]
